FAERS Safety Report 4289028-2 (Version None)
Quarter: 2004Q1

REPORT INFORMATION
  Report Type: 
  Country: None (occurrence: None)
  Receive Date: 20040130
  Receipt Date: 20030401
  Transmission Date: 20041129
  Serious: Yes (Other)
  Sender: FDA-Public Use
  Company Number: ZANA001044

PATIENT
  Age: 27 Year
  Sex: Female
  Weight: 70.3075 kg

DRUGS (12)
  1. ZANAPLEX (TIZANIDINE HYDROCHLORIDE) [Suspect]
     Indication: CONVULSION
     Dosage: 8 MG DAILY ORAL
     Route: 048
     Dates: start: 20020301, end: 20020923
  2. NEURONTIN [Concomitant]
  3. ALBUTEROL [Concomitant]
  4. ATIVAN [Concomitant]
  5. SENOKOT [Concomitant]
  6. DIASTAT (PECTIN) [Concomitant]
  7. ROBITUSSIN  (GUAIFENESIN) [Concomitant]
  8. SYNTHROID [Concomitant]
  9. VITAMIN C (ASCORBIC ACID) [Concomitant]
  10. MAGNESIUM (MAGNESIUM OXIDE) [Concomitant]
  11. KEPPRA [Concomitant]
  12. DULCOLAX [Concomitant]

REACTIONS (1)
  - LIVER FUNCTION TEST ABNORMAL [None]
